FAERS Safety Report 18017957 (Version 1)
Quarter: 2020Q3

REPORT INFORMATION
  Report Type: Spontaneous
  Country: US (occurrence: US)
  Receive Date: 20200713
  Receipt Date: 20200713
  Transmission Date: 20201103
  Serious: Yes (Other)
  Sender: FDA-Public Use
  Company Number: None

PATIENT
  Age: 29 Year
  Sex: Male
  Weight: 71.67 kg

DRUGS (1)
  1. BUP?NALOXONE TABLETS 8?2MG [Suspect]
     Active Substance: BUPRENORPHINE\NALOXONE
     Indication: DRUG DEPENDENCE
     Route: 060
     Dates: start: 20200608, end: 20200708

REACTIONS (7)
  - Hyperhidrosis [None]
  - Product solubility abnormal [None]
  - Vomiting [None]
  - Drug dependence [None]
  - Retching [None]
  - Withdrawal syndrome [None]
  - Incorrect dose administered [None]

NARRATIVE: CASE EVENT DATE: 20200606
